FAERS Safety Report 11104539 (Version 13)
Quarter: 2019Q1

REPORT INFORMATION
  Report Type: Report from Study
  Country: IT (occurrence: IT)
  Receive Date: 20150511
  Receipt Date: 20190314
  Transmission Date: 20190417
  Serious: Yes (Hospitalization, Other)
  Sender: FDA-Public Use
  Company Number: PHHY2015IT052559

PATIENT
  Age: 48 Year
  Sex: Female
  Weight: 70 kg

DRUGS (11)
  1. DELTACORTENE [Concomitant]
     Active Substance: PREDNISONE
     Dosage: 62.5 MG, QD
     Route: 065
  2. CASPOFUNGINE [Concomitant]
     Active Substance: CASPOFUNGIN
     Indication: PRODUCT USED FOR UNKNOWN INDICATION
     Dosage: 50 MG
     Route: 065
     Dates: start: 20150506, end: 20150508
  3. STILNOX [Concomitant]
     Active Substance: ZOLPIDEM TARTRATE
     Indication: PRODUCT USED FOR UNKNOWN INDICATION
     Route: 065
  4. PANTOPRAZOLE [Concomitant]
     Active Substance: PANTOPRAZOLE
     Indication: PRODUCT USED FOR UNKNOWN INDICATION
     Dosage: 40 MG
     Route: 065
  5. AMBISONE [Concomitant]
     Active Substance: AMPHOTERICIN B
     Indication: PRODUCT USED FOR UNKNOWN INDICATION
     Dosage: 350 MG
     Route: 065
     Dates: start: 20150508, end: 20150513
  6. URBASON                                 /GFR/ [Concomitant]
     Active Substance: METHYLPREDNISOLONE
     Indication: PRODUCT USED FOR UNKNOWN INDICATION
     Dosage: 40 MG, UNK
     Route: 065
     Dates: start: 20150515, end: 20150519
  7. ALBUMIN [Concomitant]
     Active Substance: ALBUMIN HUMAN
     Indication: PRODUCT USED FOR UNKNOWN INDICATION
     Route: 065
  8. ALANERV [Concomitant]
     Active Substance: DIETARY SUPPLEMENT
     Indication: PRODUCT USED FOR UNKNOWN INDICATION
     Dosage: 1 DF
     Route: 065
  9. GILENYA [Suspect]
     Active Substance: FINGOLIMOD HYDROCHLORIDE
     Indication: MULTIPLE SCLEROSIS
     Dosage: 0.5 MG, QD
     Route: 048
     Dates: start: 20131018, end: 20150410
  10. URBASON                                 /GFR/ [Concomitant]
     Active Substance: METHYLPREDNISOLONE
     Dosage: 80 MG, UNK
     Route: 065
     Dates: start: 20150520, end: 20150522
  11. DELTACORTENE [Concomitant]
     Active Substance: PREDNISONE
     Indication: PRODUCT USED FOR UNKNOWN INDICATION
     Dosage: 25 MG, UNK
     Route: 065

REACTIONS (22)
  - Tremor [Unknown]
  - Paraesthesia [Recovered/Resolved]
  - Evans syndrome [Recovered/Resolved]
  - Thrombocytopenia [Recovered/Resolved]
  - Urosepsis [Unknown]
  - Vulvovaginal candidiasis [Recovered/Resolved]
  - Neutropenia [Unknown]
  - Uterine polyp [Unknown]
  - Autoimmune haemolytic anaemia [Recovering/Resolving]
  - Haemorrhagic diathesis [Unknown]
  - Escherichia urinary tract infection [Recovered/Resolved]
  - Blood lactate dehydrogenase increased [Unknown]
  - Pyrexia [Recovered/Resolved with Sequelae]
  - Haemolysis [Unknown]
  - Asthenia [Unknown]
  - Viral infection [Recovering/Resolving]
  - Lymphocyte count decreased [Recovering/Resolving]
  - Oedema peripheral [Recovered/Resolved]
  - Hepatomegaly [Unknown]
  - Thrombocytopenia [Recovered/Resolved]
  - Low density lipoprotein increased [Unknown]
  - Gamma-glutamyltransferase increased [Unknown]

NARRATIVE: CASE EVENT DATE: 20140419
